FAERS Safety Report 23148316 (Version 1)
Quarter: 2023Q4

REPORT INFORMATION
  Report Type: Report from Study
  Country: IT (occurrence: IT)
  Receive Date: 20231106
  Receipt Date: 20231106
  Transmission Date: 20240110
  Serious: Yes (Other)
  Sender: FDA-Public Use
  Company Number: IT-GLAXOSMITHKLINE-IT2023EME149622

PATIENT

DRUGS (1)
  1. DOSTARLIMAB [Suspect]
     Active Substance: DOSTARLIMAB
     Indication: Endometrial cancer
     Dosage: UNK (500MG EVERY 3WEEKS FOR THE FIRST 4CYCLES, THEN 1000MG EVERY 6WEEKS FOR THE REMAINING CYCLES)
     Dates: start: 202212

REACTIONS (2)
  - Recurrent cancer [Not Recovered/Not Resolved]
  - Blood creatinine increased [Not Recovered/Not Resolved]
